FAERS Safety Report 5043421-9 (Version None)
Quarter: 2006Q2

REPORT INFORMATION
  Report Type: 
  Country: None (occurrence: None)
  Receive Date: 20060629
  Receipt Date: 20060614
  Transmission Date: 20061013
  Serious: Yes (Other)
  Sender: FDA-Public Use
  Company Number: 2006RR-02692

PATIENT
  Age: 32 Year
  Sex: Male

DRUGS (3)
  1. FLUCONAZOLE [Suspect]
     Dosage: INTRAVENOUS
     Route: 042
  2. VORICONAZOLE (VORICONAZOLE) [Suspect]
     Indication: INFECTION
  3. NYSTATIN [Concomitant]

REACTIONS (1)
  - ALANINE AMINOTRANSFERASE INCREASED [None]
